FAERS Safety Report 18382814 (Version 1)
Quarter: 2020Q4

REPORT INFORMATION
  Report Type: Spontaneous
  Country: US (occurrence: US)
  Receive Date: 20201014
  Receipt Date: 20201014
  Transmission Date: 20210114
  Serious: No
  Sender: FDA-Public Use
  Company Number: US-PFIZER INC-2020397199

PATIENT
  Age: 49 Year
  Sex: Female
  Weight: 70.75 kg

DRUGS (1)
  1. INLYTA [Suspect]
     Active Substance: AXITINIB
     Indication: TRACHEAL CANCER
     Dosage: 5 MG, 2X/DAY
     Route: 048
     Dates: start: 20200815

REACTIONS (3)
  - Dyspepsia [Unknown]
  - Off label use [Unknown]
  - Product use in unapproved indication [Unknown]

NARRATIVE: CASE EVENT DATE: 2020
